FAERS Safety Report 7056648-1 (Version None)
Quarter: 2010Q4

REPORT INFORMATION
  Report Type: 
  Country: None (occurrence: None)
  Receive Date: 20101019
  Receipt Date: 20101004
  Transmission Date: 20110411
  Serious: Yes (Hospitalization, Other)
  Sender: FDA-Public Use
  Company Number: AUR-APL-2010-02452

PATIENT
  Age: 71 Year
  Sex: Male
  Weight: 94 kg

DRUGS (4)
  1. METFORMIN HCL [Suspect]
     Dosage: ORAL
     Route: 048
     Dates: start: 20100601, end: 20100921
  2. ASPIRIN [Concomitant]
  3. CLOPIDOGREL [Concomitant]
  4. RAMIPRIL [Concomitant]

REACTIONS (1)
  - HEPATITIS ACUTE [None]
